FAERS Safety Report 9473260 (Version 2)
Quarter: 2013Q3

REPORT INFORMATION
  Report Type: Spontaneous
  Country: US (occurrence: US)
  Receive Date: 20130823
  Receipt Date: 20130823
  Transmission Date: 20140515
  Serious: No
  Sender: FDA-Public Use
  Company Number: US-GALDERMA-US-GDP-12413646

PATIENT
  Age: 54 Year
  Sex: Female
  Weight: 75 kg

DRUGS (6)
  1. METROGEL [Suspect]
     Indication: ROSACEA
     Route: 061
     Dates: start: 20120417, end: 20120421
  2. ZYCLARA [Interacting]
     Route: 061
     Dates: start: 201201
  3. CLEARASIL DAILY CLEAR ADULT TINTED ACNE TREATMENT [Suspect]
     Indication: ACNE
  4. OLAY MOISTURIZER [Concomitant]
  5. OLAY SUN PROTECTION FACTOR [Concomitant]
  6. OLAY FACIAL WASH [Concomitant]

REACTIONS (9)
  - Blister [Recovered/Resolved]
  - Rash papular [Recovered/Resolved]
  - Skin exfoliation [Recovered/Resolved]
  - Swelling face [Recovered/Resolved]
  - Skin burning sensation [Recovered/Resolved]
  - Pruritus [Recovered/Resolved]
  - Erythema [Recovered/Resolved]
  - Dry skin [Recovered/Resolved]
  - Dermatitis contact [Unknown]
